FAERS Safety Report 5745876-0 (Version None)
Quarter: 2008Q2

REPORT INFORMATION
  Report Type: 
  Country: None (occurrence: None)
  Receive Date: 20080521
  Receipt Date: 20080508
  Transmission Date: 20081010
  Serious: Yes (Other)
  Sender: FDA-Public Use
  Company Number: JP-GENENTECH-261087

PATIENT
  Sex: Male

DRUGS (6)
  1. BEVACIZUMAB [Suspect]
     Indication: COLON CANCER METASTATIC
     Dosage: 5 MG/KG, UNK
     Route: 041
     Dates: start: 20071017
  2. OXALIPLATIN [Suspect]
     Indication: COLON CANCER METASTATIC
     Route: 041
     Dates: start: 20071017
  3. FLUOROURACIL [Suspect]
     Indication: COLON CANCER METASTATIC
     Route: 042
     Dates: start: 20071017
  4. ISOVORIN [Suspect]
     Indication: COLON CANCER METASTATIC
     Route: 041
     Dates: start: 20071017
  5. PARIET [Concomitant]
     Indication: DRUG USE FOR UNKNOWN INDICATION
     Dates: start: 20070705
  6. NORVASC [Concomitant]
     Indication: DRUG USE FOR UNKNOWN INDICATION
     Dates: start: 20070416

REACTIONS (1)
  - DYSPHONIA [None]
